FAERS Safety Report 16037016 (Version 2)
Quarter: 2021Q1

REPORT INFORMATION
  Report Type: Report from Study
  Country: US (occurrence: US)
  Receive Date: 20190305
  Receipt Date: 20210128
  Transmission Date: 20210419
  Serious: Yes (Other)
  Sender: FDA-Public Use
  Company Number: US-ALEXION PHARMACEUTICALS INC.-A201903130

PATIENT
  Sex: Female

DRUGS (5)
  1. TYLENOL [Concomitant]
     Active Substance: ACETAMINOPHEN
     Indication: PRODUCT USED FOR UNKNOWN INDICATION
     Dosage: UNK
     Route: 065
  2. LIDOCAINE AND PRILOCAINE [Concomitant]
     Active Substance: LIDOCAINE\PRILOCAINE
     Indication: PRODUCT USED FOR UNKNOWN INDICATION
     Dosage: UNK
     Route: 061
  3. SOLIRIS [Suspect]
     Active Substance: ECULIZUMAB
     Indication: ATYPICAL HAEMOLYTIC URAEMIC SYNDROME
     Dosage: UNK
     Route: 065
  4. ETHOSUXIMIDE. [Concomitant]
     Active Substance: ETHOSUXIMIDE
     Indication: PRODUCT USED FOR UNKNOWN INDICATION
     Dosage: UNK
     Route: 065
  5. LYSINE [Concomitant]
     Active Substance: LYSINE
     Indication: PRODUCT USED FOR UNKNOWN INDICATION
     Dosage: UNK
     Route: 065

REACTIONS (16)
  - Hypoglycaemia [Unknown]
  - Blood albumin increased [Unknown]
  - Seizure [Recovered/Resolved]
  - Neutrophil count decreased [Unknown]
  - Attention deficit hyperactivity disorder [Unknown]
  - Amenorrhoea [Unknown]
  - Iron binding capacity total increased [Unknown]
  - Proteinuria [Unknown]
  - Blood potassium increased [Unknown]
  - Menorrhagia [Not Recovered/Not Resolved]
  - Blood iron increased [Unknown]
  - Diarrhoea [Unknown]
  - Albumin globulin ratio increased [Unknown]
  - Nasopharyngitis [Unknown]
  - Transferrin saturation increased [Unknown]
  - Patient isolation [Unknown]

NARRATIVE: CASE EVENT DATE: 20200902
